FAERS Safety Report 4767837-0 (Version None)
Quarter: 2005Q3

REPORT INFORMATION
  Report Type: 
  Country: None (occurrence: None)
  Receive Date: 20050912
  Receipt Date: 20050831
  Transmission Date: 20060218
  Serious: Yes (Hospitalization, Other)
  Sender: FDA-Public Use
  Company Number: 2005123387

PATIENT
  Age: 45 Year
  Sex: Male
  Weight: 83.0083 kg

DRUGS (5)
  1. XANAX [Suspect]
     Indication: ANXIETY
     Dosage: 2 MG, AS NECESSARY, ORAL
     Route: 048
  2. XANAX [Suspect]
     Indication: SLEEP DISORDER
     Dosage: 2 MG, AS NECESSARY, ORAL
     Route: 048
  3. METHADON HCL TAB [Concomitant]
  4. METHOCARBAMOL [Concomitant]
  5. AMBIEN [Concomitant]

REACTIONS (3)
  - JOINT SWELLING [None]
  - OEDEMA PERIPHERAL [None]
  - POST PROCEDURAL OEDEMA [None]
